FAERS Safety Report 4613289-0 (Version None)
Quarter: 2005Q1

REPORT INFORMATION
  Report Type: 
  Country: None (occurrence: None)
  Receive Date: 20050315
  Receipt Date: 20041001
  Transmission Date: 20050727
  Serious: Yes (Life-Threatening, Hospitalization)
  Sender: FDA-Public Use
  Company Number: 8953

PATIENT
  Age: 12 Year
  Sex: Female

DRUGS (8)
  1. METHOTREXATE [Suspect]
     Indication: ARTHRITIS
     Dosage: 10 MG WEEKLY PO
     Route: 048
     Dates: start: 20040623, end: 20040707
  2. METHOTREXATE [Suspect]
     Indication: DERMATOMYOSITIS
     Dosage: 10 MG WEEKLY PO
     Route: 048
     Dates: start: 20040623, end: 20040707
  3. PREDNISOLONE [Concomitant]
  4. METHYLPREDNISOLONE [Concomitant]
  5. CALCIUM CARNOBATE [Concomitant]
  6. PENICILLIN V POTASSIUM [Concomitant]
  7. FLUCONAZOLE [Concomitant]
  8. IBUPROFEN [Concomitant]

REACTIONS (3)
  - ASPARTATE AMINOTRANSFERASE INCREASED [None]
  - JAUNDICE [None]
  - LIVER TRANSPLANT [None]
